FAERS Safety Report 5151317-7 (Version None)
Quarter: 2006Q4

REPORT INFORMATION
  Report Type: 
  Country: None (occurrence: None)
  Receive Date: 20061114
  Receipt Date: 20061114
  Transmission Date: 20070319
  Serious: Yes (Hospitalization)
  Sender: FDA-Public Use
  Company Number: None

PATIENT
  Age: 29 Year
  Sex: Female
  Weight: 77.1115 kg

DRUGS (1)
  1. ACETAMINOPHEN PAIN RELIEVER    500 MG    EQUATE [Suspect]
     Indication: POSTOPERATIVE CARE
     Dosage: 500 MG   EVERY 4 HOURS  PO
     Route: 048
     Dates: start: 20061107, end: 20061110

REACTIONS (4)
  - PHARMACEUTICAL PRODUCT COMPLAINT [None]
  - PRURITUS [None]
  - RASH [None]
  - URTICARIA [None]
